FAERS Safety Report 9303307 (Version 4)
Quarter: 2013Q3

REPORT INFORMATION
  Report Type: Report from Study
  Country: AU (occurrence: AU)
  Receive Date: 20130522
  Receipt Date: 20130809
  Transmission Date: 20140515
  Serious: Yes (Hospitalization)
  Sender: FDA-Public Use
  Company Number: AU-ASTELLAS-2013EU003181

PATIENT
  Age: 80 Year
  Sex: Male
  Weight: 90.8 kg

DRUGS (13)
  1. BLINDED ENZALUTAMIDE [Suspect]
     Indication: PROSTATE CANCER
     Dosage: 160 MG, UID/QD
     Route: 048
     Dates: start: 20120405, end: 20130322
  2. NORVASC [Concomitant]
     Indication: HYPERTENSION
     Dosage: 2.5 MG, UID/QD
     Route: 048
     Dates: start: 2011
  3. COVERSYL                           /00790702/ [Concomitant]
     Indication: HYPERTENSION
     Dosage: 5 MG, UID/QD
     Route: 048
     Dates: start: 1998
  4. LIPITOR [Concomitant]
     Indication: HYPERLIPIDAEMIA
     Dosage: 20 MG, UID/QD
     Route: 048
     Dates: start: 2002
  5. SOTALOL [Concomitant]
     Indication: HYPERTENSION
     Dosage: 120 MG, BID
     Route: 048
     Dates: start: 1998
  6. CALCIUM [Concomitant]
     Indication: PROPHYLAXIS
     Dosage: 600 MG, UID/QD
     Route: 048
     Dates: start: 20111229
  7. FERROGRAD                          /00023503/ [Concomitant]
     Indication: PROPHYLAXIS
     Dosage: 1 DF, UID/QD
     Route: 048
     Dates: start: 201203
  8. ACIMAX [Concomitant]
     Dosage: 20 MG, UID/QD
     Route: 048
     Dates: start: 201203
  9. CLARATYNE [Concomitant]
     Indication: DYSPNOEA
     Dosage: 10 MG, UID/QD
     Route: 048
     Dates: start: 201204
  10. WARFARIN [Concomitant]
     Indication: ATRIAL FIBRILLATION
     Dosage: 5 MG, UID/QD
     Route: 048
     Dates: start: 20120628
  11. CIPRAMIL                           /00582602/ [Concomitant]
     Indication: DEPRESSION
     Dosage: 20 MG, UID/QD
     Route: 048
     Dates: start: 20121214
  12. DENOSUMAB [Concomitant]
     Indication: PROSTATE CANCER
     Dosage: 120 MG, MONTHLY
     Route: 058
     Dates: start: 20111229
  13. ZOLADEX                            /00732101/ [Concomitant]
     Indication: PROSTATE CANCER
     Dosage: 10.8 MG, OTHER
     Route: 058
     Dates: start: 201301

REACTIONS (1)
  - Congestive cardiomyopathy [Recovered/Resolved with Sequelae]
